FAERS Safety Report 7760130-3 (Version None)
Quarter: 2011Q3

REPORT INFORMATION
  Report Type: 
  Country: None (occurrence: None)
  Receive Date: 20110919
  Receipt Date: 20110904
  Transmission Date: 20111222
  Serious: Yes (Death, Hospitalization, Other)
  Sender: FDA-Public Use
  Company Number: IL-AMGEN-ISRSP2011044572

PATIENT
  Age: 90 Year
  Sex: Female

DRUGS (5)
  1. NEULASTIM [Suspect]
     Indication: PROPHYLAXIS
     Route: 065
  2. ONCOVIN [Suspect]
     Indication: PRIMARY EFFUSION LYMPHOMA
     Route: 065
  3. CYCLOPHOSPHAMIDE [Suspect]
     Indication: PRIMARY EFFUSION LYMPHOMA
     Route: 065
  4. DOXORUBICIN HCL [Suspect]
     Indication: PRIMARY EFFUSION LYMPHOMA
     Route: 065
  5. PREDNISONE [Suspect]
     Indication: PRIMARY EFFUSION LYMPHOMA
     Route: 065

REACTIONS (10)
  - CONFUSIONAL STATE [None]
  - SEPTIC SHOCK [None]
  - INFECTION [None]
  - IMMUNE SYSTEM DISORDER [None]
  - NEUTROPHILIA [None]
  - HEPATIC FUNCTION ABNORMAL [None]
  - CELLULITIS [None]
  - SEPSIS [None]
  - RENAL IMPAIRMENT [None]
  - LOSS OF CONSCIOUSNESS [None]
